FAERS Safety Report 5748372-X (Version None)
Quarter: 2008Q2

REPORT INFORMATION
  Report Type: 
  Country: None (occurrence: None)
  Receive Date: 20080520
  Receipt Date: 20080505
  Transmission Date: 20081010
  Serious: Yes (Death, Hospitalization, Other)
  Sender: FDA-Public Use
  Company Number: 310012M07FRA

PATIENT
  Age: 25 Year
  Sex: Female
  Weight: 50 kg

DRUGS (7)
  1. GONAL-F [Suspect]
     Indication: OVARIAN DISORDER
     Dosage: 1500 IU, 1 IN 1 DAYS, SUBCUTANEOUS
     Route: 058
     Dates: start: 20071025, end: 20071103
  2. OVITRELLE (CHORIOGONADOTROPIN ALFA) [Suspect]
     Indication: LUTEAL PHASE DEFICIENCY
     Dosage: 250 MCG,  125 MCG, ONCE, SUBCUTANEOUS
     Route: 058
     Dates: start: 20071104, end: 20071104
  3. OVITRELLE (CHORIOGONADOTROPIN ALFA) [Suspect]
     Indication: OVARIAN DISORDER
     Dosage: 250 MCG,  125 MCG, ONCE, SUBCUTANEOUS
     Route: 058
     Dates: start: 20071104, end: 20071104
  4. OVITRELLE (CHORIOGONADOTROPIN ALFA) [Suspect]
     Indication: LUTEAL PHASE DEFICIENCY
     Dosage: 250 MCG,  125 MCG, ONCE, SUBCUTANEOUS
     Route: 058
     Dates: start: 20071109, end: 20071109
  5. OVITRELLE (CHORIOGONADOTROPIN ALFA) [Suspect]
     Indication: OVARIAN DISORDER
     Dosage: 250 MCG,  125 MCG, ONCE, SUBCUTANEOUS
     Route: 058
     Dates: start: 20071109, end: 20071109
  6. MENOPUR [Suspect]
     Indication: OVARIAN DISORDER
     Dosage: 375 IU, 1 IN 1 DAYS, SUBCUTANEOUS
     Route: 058
     Dates: start: 20071031, end: 20071103
  7. GONADORELIN INJ [Concomitant]

REACTIONS (32)
  - ABDOMINAL PAIN [None]
  - BRAIN DEATH [None]
  - BRAIN HERNIATION [None]
  - BRAIN OEDEMA [None]
  - CAROTID ARTERY OCCLUSION [None]
  - CEREBRAL ARTERY THROMBOSIS [None]
  - CEREBRAL INFARCTION [None]
  - CEREBROVASCULAR ACCIDENT [None]
  - CORNEAL LIGHT REFLEX TEST ABNORMAL [None]
  - DRUG INEFFECTIVE [None]
  - DYSPNOEA [None]
  - FACIAL PALSY [None]
  - FALL [None]
  - FIBRIN D DIMER INCREASED [None]
  - HAEMATOMA [None]
  - HAEMOCONCENTRATION [None]
  - HEADACHE [None]
  - HEMIPLEGIA [None]
  - HYPERCOAGULATION [None]
  - HYPERTONIA [None]
  - HYPOCAPNIA [None]
  - HYPOTHERMIA [None]
  - INTRACRANIAL PRESSURE INCREASED [None]
  - MALAISE [None]
  - MYDRIASIS [None]
  - NAUSEA [None]
  - OVARIAN CYST [None]
  - PNEUMOTHORAX [None]
  - POLYURIA [None]
  - SOMNOLENCE [None]
  - SUBDURAL HAEMATOMA [None]
  - VOMITING [None]
